FAERS Safety Report 15378375 (Version 2)
Quarter: 2018Q3

REPORT INFORMATION
  Report Type: Spontaneous
  Country: US (occurrence: US)
  Receive Date: 20180913
  Receipt Date: 20180928
  Transmission Date: 20181010
  Serious: Yes (Hospitalization, Other)
  Sender: FDA-Public Use
  Company Number: US-IPSEN BIOPHARMACEUTICALS, INC.-2018-13722

PATIENT
  Age: 73 Year
  Sex: Male
  Weight: 47.54 kg

DRUGS (9)
  1. MORPHINE CONCENTRATE [Concomitant]
     Dosage: ON STAND BY, HAS NOT NEEDED
  2. ONIVYDE [Suspect]
     Active Substance: IRINOTECAN HYDROCHLORIDE
     Indication: METASTASES TO LYMPH NODES
  3. ONIVYDE [Suspect]
     Active Substance: IRINOTECAN HYDROCHLORIDE
     Indication: PANCREATIC CARCINOMA METASTATIC
     Dosage: 110 MG
     Route: 042
     Dates: start: 20180514
  4. LOSARTAN. [Concomitant]
     Active Substance: LOSARTAN
  5. MIRTAZAPINE. [Concomitant]
     Active Substance: MIRTAZAPINE
     Dosage: AT BEDTIME
  6. MORPHINE SULPHATE [Concomitant]
     Active Substance: MORPHINE SULFATE
     Dosage: EXTENDED RELEASE
  7. METOCLOPRAMIDE. [Concomitant]
     Active Substance: METOCLOPRAMIDE
     Dosage: HALF OF ONE TABLET TWICE DAILY (10 MG TABLET)
  8. ALLOPURINOL. [Concomitant]
     Active Substance: ALLOPURINOL
     Dosage: HALF OF A TABLET DAILY (300 MG TABLET)
  9. DEXAMETHASONE. [Concomitant]
     Active Substance: DEXAMETHASONE

REACTIONS (13)
  - Constipation [Unknown]
  - Traumatic haematoma [Unknown]
  - Rash [Unknown]
  - Prostate cancer [Unknown]
  - Obstruction gastric [Unknown]
  - Malnutrition [Unknown]
  - Neuropathy peripheral [Unknown]
  - Non-cardiac chest pain [Unknown]
  - Fall [Unknown]
  - Weight decreased [Unknown]
  - Hypertension [Unknown]
  - Skin abrasion [Unknown]
  - Off label use [Unknown]

NARRATIVE: CASE EVENT DATE: 2018
